FAERS Safety Report 24218076 (Version 1)
Quarter: 2024Q3

REPORT INFORMATION
  Report Type: Other
  Country: US (occurrence: US)
  Receive Date: 20240816
  Receipt Date: 20240816
  Transmission Date: 20241016
  Serious: Yes (Hospitalization, Other)
  Sender: B BRAUN
  Company Number: US-B.Braun Medical Inc.-2160541

PATIENT
  Age: 86 Year
  Sex: Female

DRUGS (13)
  1. LEVETIRACETAM [Suspect]
     Active Substance: LEVETIRACETAM
     Indication: Seizure
  2. ALLOPURINOL [Concomitant]
     Active Substance: ALLOPURINOL
  3. PANTOPRAZOLE [Concomitant]
     Active Substance: PANTOPRAZOLE
  4. NIFEDIPINE [Concomitant]
     Active Substance: NIFEDIPINE
  5. LEVOTHYROXINE [Concomitant]
     Active Substance: LEVOTHYROXINE\LEVOTHYROXINE SODIUM
  6. IRON [Concomitant]
     Active Substance: IRON
  7. GABAPENTIN [Concomitant]
     Active Substance: GABAPENTIN
  8. FUROSEMIDE [Concomitant]
     Active Substance: FUROSEMIDE
  9. ESCITALOPRAM [Concomitant]
     Active Substance: ESCITALOPRAM OXALATE
  10. CLOPIDOGREL [Concomitant]
     Active Substance: CLOPIDOGREL BISULFATE
  11. CLONIDINE [Concomitant]
     Active Substance: CLONIDINE
  12. CARVEDILOL [Concomitant]
     Active Substance: CARVEDILOL
  13. CALCITRIOL [Concomitant]
     Active Substance: CALCITRIOL

REACTIONS (5)
  - Delusion [Recovered/Resolved]
  - Tardive dyskinesia [Recovered/Resolved]
  - Agitation [Recovered/Resolved]
  - Aggression [Recovered/Resolved]
  - Hallucination [Recovered/Resolved]
